FAERS Safety Report 7067516-3 (Version None)
Quarter: 2010Q4

REPORT INFORMATION
  Report Type: 
  Country: None (occurrence: None)
  Receive Date: 20101028
  Receipt Date: 20101018
  Transmission Date: 20110411
  Serious: Yes (Other)
  Sender: FDA-Public Use
  Company Number: US-JNJFOC-20101005171

PATIENT
  Age: 16 Year
  Sex: Female
  Weight: 63.5 kg

DRUGS (6)
  1. TOPAMAX [Suspect]
     Indication: BIPOLAR DISORDER
     Route: 048
  2. GEODON [Suspect]
     Indication: BIPOLAR DISORDER
     Route: 048
  3. ADDERALL 10 [Concomitant]
     Indication: BIPOLAR DISORDER
     Dosage: IN THE MORNING
     Route: 065
  4. CLONIDINE HYDROCHLORIDE [Concomitant]
     Indication: SLEEP DISORDER THERAPY
     Route: 048
  5. BENZATROPINE [Concomitant]
     Indication: BIPOLAR DISORDER
     Route: 048
  6. WELLBUTRIN [Concomitant]
     Indication: DEPRESSION
     Route: 048

REACTIONS (8)
  - ALOPECIA [None]
  - COGNITIVE DISORDER [None]
  - PROTEIN TOTAL ABNORMAL [None]
  - RASH PRURITIC [None]
  - TREMOR [None]
  - URTICARIA [None]
  - VISION BLURRED [None]
  - VISUAL IMPAIRMENT [None]
